FAERS Safety Report 24139915 (Version 1)
Quarter: 2024Q3

REPORT INFORMATION
  Report Type: Spontaneous
  Country: FR (occurrence: FR)
  Receive Date: 20240726
  Receipt Date: 20240726
  Transmission Date: 20241017
  Serious: Yes (Other)
  Sender: AUROBINDO
  Company Number: FR-AFSSAPS-AVPA2024000647

PATIENT
  Age: 34 Year
  Sex: Male

DRUGS (2)
  1. PREGABALIN [Suspect]
     Active Substance: PREGABALIN
     Indication: Product used for unknown indication
     Dosage: JUSQU^? 4200MGEN UNE PRISE (UPTO 4200 MGEN ONE OUTLET)
     Route: 065
     Dates: start: 2019
  2. CANNABIS SATIVA SUBSP. INDICA TOP [Concomitant]
     Active Substance: CANNABIS SATIVA SUBSP. INDICA TOP
     Indication: Product used for unknown indication
     Dosage: UNK
     Route: 065
     Dates: start: 2008

REACTIONS (4)
  - Drug abuse [Not Recovered/Not Resolved]
  - Aggression [Recovered/Resolved]
  - Somnolence [Recovered/Resolved]
  - Pharmaceutical nomadism [Not Recovered/Not Resolved]

NARRATIVE: CASE EVENT DATE: 20240418
